FAERS Safety Report 5601428-4 (Version None)
Quarter: 2007Q4

REPORT INFORMATION
  Report Type: 
  Country: None (occurrence: None)
  Receive Date: 20071231
  Receipt Date: 20070222
  Transmission Date: 20080405
  Serious: Yes (Hospitalization, Other)
  Sender: FDA-Public Use
  Company Number: 151654USA

PATIENT
  Age: 35 Year
  Sex: Female

DRUGS (1)
  1. CLOZAPINE [Suspect]
     Indication: PSYCHOTIC DISORDER
     Dosage: 12.5MG QAM+150 MG QHS,ORAL
     Route: 048
     Dates: start: 20060615, end: 20060629

REACTIONS (2)
  - CARDIAC FAILURE CONGESTIVE [None]
  - PNEUMONIA [None]
